FAERS Safety Report 9454898 (Version 2)
Quarter: 2013Q3

REPORT INFORMATION
  Report Type: Spontaneous
  Country: US (occurrence: US)
  Receive Date: 20130813
  Receipt Date: 20130826
  Transmission Date: 20140515
  Serious: Yes (Hospitalization, Other)
  Sender: FDA-Public Use
  Company Number: US-BRISTOL-MYERS SQUIBB COMPANY-19155928

PATIENT
  Age: 58 Year
  Sex: Female
  Weight: 72.56 kg

DRUGS (10)
  1. BYETTA [Suspect]
     Indication: TYPE 2 DIABETES MELLITUS
     Dosage: 1DF:BYETTA INJECTION 250MCG/ML
     Route: 058
     Dates: start: 2009
  2. GLUCOVANCE [Concomitant]
     Dosage: 1DF:5/500MG
     Route: 048
  3. PLAVIX [Concomitant]
     Route: 048
  4. COREG [Concomitant]
     Route: 048
  5. SIMVASTATIN [Concomitant]
     Route: 048
  6. ASPIRIN [Concomitant]
     Route: 048
  7. BENTYL [Concomitant]
     Route: 048
  8. LANTUS [Concomitant]
     Route: 058
  9. LOMOTIL [Concomitant]
     Route: 048
  10. NITROGLYCERIN [Concomitant]

REACTIONS (7)
  - Myocardial infarction [Recovering/Resolving]
  - Pneumonia [Recovering/Resolving]
  - Spinal compression fracture [Unknown]
  - Loss of consciousness [Recovering/Resolving]
  - Bronchitis [Recovering/Resolving]
  - Weight decreased [Unknown]
  - Fall [Unknown]
